FAERS Safety Report 23098610 (Version 2)
Quarter: 2023Q4

REPORT INFORMATION
  Report Type: Spontaneous
  Country: AU (occurrence: AU)
  Receive Date: 20231023
  Receipt Date: 20231211
  Transmission Date: 20240110
  Serious: Yes (Other)
  Sender: FDA-Public Use
  Company Number: AU-BRISTOL-MYERS SQUIBB COMPANY-RCT-2023-0460133

PATIENT
  Age: 71 Year
  Sex: Male
  Weight: 71 kg

DRUGS (2)
  1. REVLIMID [Suspect]
     Active Substance: LENALIDOMIDE
     Indication: Plasma cell myeloma
     Route: 048
  2. REVLIMID [Suspect]
     Active Substance: LENALIDOMIDE
     Dosage: DOSE : ONE CAPSULE;     FREQ : DAILY AT FIVE O^CLOCK CONTINUOUSLY
     Route: 048

REACTIONS (6)
  - Neuropathy peripheral [Unknown]
  - Ileus paralytic [Unknown]
  - Migraine [Unknown]
  - Bone pain [Unknown]
  - Gallbladder disorder [Unknown]
  - Malaise [Unknown]
